FAERS Safety Report 10172264 (Version 1)
Quarter: 2014Q2

REPORT INFORMATION
  Report Type: Report from Study
  Country: AU (occurrence: AU)
  Receive Date: 20140515
  Receipt Date: 20140515
  Transmission Date: 20141212
  Serious: Yes (Hospitalization)
  Sender: FDA-Public Use
  Company Number: AU-ROCHE-1396911

PATIENT
  Sex: Female

DRUGS (9)
  1. TRASTUZUMAB [Suspect]
     Indication: BREAST CANCER
     Dosage: LOADING DOSE
     Route: 065
  2. TRASTUZUMAB [Suspect]
     Dosage: MAINTAINENCE DOSE
     Route: 065
  3. DOCETAXEL [Suspect]
     Indication: BREAST CANCER
     Route: 065
  4. CARBOPLATIN [Suspect]
     Indication: BREAST CANCER
     Route: 065
  5. 5-FLUOROURACIL [Suspect]
     Indication: BREAST CANCER
     Route: 065
  6. CYCLOPHOSPHAMIDE [Suspect]
     Indication: BREAST CANCER
     Route: 065
  7. CYCLOPHOSPHAMIDE [Suspect]
     Route: 065
  8. DOXORUBICIN [Suspect]
     Indication: BREAST CANCER
     Route: 065
  9. EPIRUBICIN [Suspect]
     Indication: BREAST CANCER
     Route: 065

REACTIONS (17)
  - Angiopathy [Unknown]
  - Cardiac disorder [Unknown]
  - Embolism venous [Unknown]
  - Pyrexia [Unknown]
  - Urinary tract infection [Unknown]
  - Respiratory tract infection [Unknown]
  - Cellulitis [Unknown]
  - Febrile neutropenia [Unknown]
  - Nausea [Unknown]
  - Vomiting [Unknown]
  - Diarrhoea [Unknown]
  - Cerebrovascular accident [Unknown]
  - Rash [Unknown]
  - Gastrointestinal disorder [Unknown]
  - Renal disorder [Unknown]
  - Nervous system disorder [Unknown]
  - Infection [Unknown]
